FAERS Safety Report 4854834-X (Version None)
Quarter: 2005Q4

REPORT INFORMATION
  Report Type: 
  Country: None (occurrence: None)
  Receive Date: 20051213
  Receipt Date: 20051130
  Transmission Date: 20060501
  Serious: Yes (Disabling)
  Sender: FDA-Public Use
  Company Number: RS005662-CDN

PATIENT
  Age: 73 Year
  Sex: Female
  Weight: 84.3 kg

DRUGS (2)
  1. RABEPRAZOLE SODIUM [Suspect]
     Indication: GASTROOESOPHAGEAL REFLUX DISEASE
     Dosage: 20 MG ORAL
     Route: 048
     Dates: start: 20040501, end: 20050101
  2. LEVOTHYROXINE SODIUM [Concomitant]

REACTIONS (5)
  - EYE PAIN [None]
  - HEADACHE [None]
  - INFLUENZA LIKE ILLNESS [None]
  - MUSCULAR WEAKNESS [None]
  - MYALGIA [None]
